FAERS Safety Report 5142541-8 (Version None)
Quarter: 2006Q4

REPORT INFORMATION
  Report Type: 
  Country: None (occurrence: None)
  Receive Date: 20061027
  Receipt Date: 20061014
  Transmission Date: 20070319
  Serious: Yes (Other)
  Sender: FDA-Public Use
  Company Number: 2006102060

PATIENT
  Sex: Male

DRUGS (2)
  1. NEURONTIN [Suspect]
     Indication: CONVULSION
  2. KLONOPIN [Suspect]
     Indication: CONVULSION

REACTIONS (4)
  - ANXIETY [None]
  - CONVULSION [None]
  - DYSKINESIA [None]
  - STRESS [None]
